FAERS Safety Report 11819572 (Version 1)
Quarter: 2015Q4

REPORT INFORMATION
  Report Type: Spontaneous
  Country: US (occurrence: None)
  Receive Date: 20151209
  Receipt Date: 20151209
  Transmission Date: 20160305
  Serious: Yes (Hospitalization)
  Sender: FDA-Public Use
  Company Number: None

PATIENT
  Age: 82 Year
  Sex: Female
  Weight: 61 kg

DRUGS (15)
  1. SYNTHROID [Concomitant]
     Active Substance: LEVOTHYROXINE SODIUM
  2. BUPROPRION [Concomitant]
     Active Substance: BUPROPION
  3. REFRESH [Concomitant]
     Active Substance: UNSPECIFIED INGREDIENT
  4. CYANOCOBALAMIN. [Concomitant]
     Active Substance: CYANOCOBALAMIN
  5. MIRALAX [Concomitant]
     Active Substance: POLYETHYLENE GLYCOL 3350
  6. NAPROXEN. [Suspect]
     Active Substance: NAPROXEN
     Indication: PAIN
     Dosage: 250-500MG BID PRN PO?CHRONIC
     Route: 048
  7. ZITHROMAX [Concomitant]
     Active Substance: AZITHROMYCIN DIHYDRATE
  8. ZYPREXA [Concomitant]
     Active Substance: OLANZAPINE
  9. VITAMIN D3 [Concomitant]
     Active Substance: CHOLECALCIFEROL
  10. FEMARA [Concomitant]
     Active Substance: LETROZOLE
  11. MELATONIN [Concomitant]
     Active Substance: MELATONIN
  12. PRAVACHOL [Concomitant]
     Active Substance: PRAVASTATIN SODIUM
  13. ZOLOFT [Concomitant]
     Active Substance: SERTRALINE HYDROCHLORIDE
  14. APAP [Concomitant]
     Active Substance: ACETAMINOPHEN
  15. ANTIVERT [Concomitant]
     Active Substance: MECLIZINE HYDROCHLORIDE

REACTIONS (6)
  - Asthenia [None]
  - Haematocrit decreased [None]
  - Gastrointestinal haemorrhage [None]
  - Haemobilia [None]
  - Gastritis [None]
  - Haemorrhagic anaemia [None]

NARRATIVE: CASE EVENT DATE: 20150805
